FAERS Safety Report 17409387 (Version 1)
Quarter: 2020Q1

REPORT INFORMATION
  Report Type: Spontaneous
  Country: CA (occurrence: CA)
  Receive Date: 20200212
  Receipt Date: 20200212
  Transmission Date: 20200409
  Serious: Yes (Other)
  Sender: FDA-Public Use
  Company Number: CA-PFIZER INC-2020037136

PATIENT
  Age: 68 Year
  Sex: Male

DRUGS (2)
  1. LEFLUNOMIDE. [Suspect]
     Active Substance: LEFLUNOMIDE
     Dosage: 20 MG, 1X/DAY
     Route: 048
  2. METHOTREXATE SODIUM. [Suspect]
     Active Substance: METHOTREXATE SODIUM
     Dosage: 20 MG, WEEKLY (2.5 MG TABS 8 PER WEEK))
     Route: 065

REACTIONS (2)
  - Lung neoplasm malignant [Unknown]
  - Lung disorder [Unknown]

NARRATIVE: CASE EVENT DATE: 20200116
